FAERS Safety Report 6619419 (Version 3)
Quarter: 2014Q2

REPORT INFORMATION
  Report Type: Spontaneous
  Country: US (occurrence: US)
  Receive Date: 20080421
  Receipt Date: 20140415
  Transmission Date: 20141212
  Serious: Yes (Death, Other)
  Sender: FDA-Public Use
  Company Number: US-JNJFOC-20080403285

PATIENT
  Sex: Female

DRUGS (5)
  1. REMICADE [Suspect]
     Indication: RHEUMATOID ARTHRITIS
     Route: 042
     Dates: end: 200605
  2. REMICADE [Suspect]
     Indication: RHEUMATOID ARTHRITIS
     Dosage: TOTAL 7 INFUSION
     Route: 042
     Dates: start: 20050819, end: 20060524
  3. REMICADE [Suspect]
     Indication: RHEUMATOID ARTHRITIS
     Route: 042
     Dates: start: 200703, end: 200801
  4. METHOTREXATE [Concomitant]
  5. ULTRAM [Concomitant]

REACTIONS (5)
  - Death [Fatal]
  - Lymphoma [Unknown]
  - Rash [Recovered/Resolved]
  - Infection [Unknown]
  - Fatigue [Recovering/Resolving]
